FAERS Safety Report 6535547-5 (Version None)
Quarter: 2010Q1

REPORT INFORMATION
  Report Type: 
  Country: None (occurrence: None)
  Receive Date: 20100113
  Receipt Date: 20100104
  Transmission Date: 20100710
  Serious: Yes (Other)
  Sender: FDA-Public Use
  Company Number: GB-ASTRAZENECA-2010SE00101

PATIENT
  Age: 65 Year
  Sex: Female
  Weight: 59.7 kg

DRUGS (3)
  1. FELODIPINE [Suspect]
     Indication: OCULAR HYPERTENSION
     Dosage: 1/1 DAYS
     Route: 048
     Dates: start: 20041028, end: 20041119
  2. BECLOMETASONE [Concomitant]
     Dates: start: 20040428
  3. ALBUTEROL [Concomitant]
     Dates: start: 20030305

REACTIONS (1)
  - VASCULITIS [None]
